FAERS Safety Report 9912544 (Version 1)
Quarter: 2014Q1

REPORT INFORMATION
  Report Type: Spontaneous
  Country: US (occurrence: None)
  Receive Date: 20140218
  Receipt Date: 20140218
  Transmission Date: 20141002
  Serious: Yes (Death)
  Sender: FDA-Public Use
  Company Number: None

PATIENT
  Age: 75 Year
  Sex: Female
  Weight: 108 kg

DRUGS (3)
  1. WARFARIN 7.5 MG JANTOVEN [Suspect]
     Indication: ATRIAL FIBRILLATION
     Route: 048
     Dates: start: 20131106, end: 20131108
  2. ENOXAPARIN 100 MG [Suspect]
     Indication: ATRIAL FIBRILLATION
     Dosage: 1 INJECTION  BID  SUBCUTANEOUS
     Route: 058
  3. ENOXAPARIN 100 MG [Suspect]
     Indication: CEREBROVASCULAR ACCIDENT
     Dosage: 1 INJECTION  BID  SUBCUTANEOUS
     Route: 058

REACTIONS (6)
  - Cardio-respiratory arrest [None]
  - Intra-abdominal haemorrhage [None]
  - Abdominal neoplasm [None]
  - Shock haemorrhagic [None]
  - Colon neoplasm [None]
  - Large intestinal haemorrhage [None]
